FAERS Safety Report 24288822 (Version 4)
Quarter: 2024Q4

REPORT INFORMATION
  Report Type: Spontaneous
  Country: US (occurrence: US)
  Receive Date: 20240906
  Receipt Date: 20241004
  Transmission Date: 20250115
  Serious: Yes (Other)
  Sender: AUROBINDO
  Company Number: US-ELI_LILLY_AND_COMPANY-US202408005327

PATIENT
  Age: 62 Year
  Sex: Male
  Weight: 93 kg

DRUGS (6)
  1. LEVOTHYROXINE SODIUM [Suspect]
     Active Substance: LEVOTHYROXINE SODIUM
     Indication: Autoimmune hypothyroidism
     Dosage: 200 MICROGRAM, ONCE A DAY
     Route: 065
  2. TIRZEPATIDE [Suspect]
     Active Substance: TIRZEPATIDE
     Indication: Obesity
     Dosage: 2.5 MILLIGRAM, EVERY WEEK 6 MONTHS PRIOR
     Route: 065
  3. TIRZEPATIDE [Suspect]
     Active Substance: TIRZEPATIDE
     Dosage: DOSE WAS INCREASED (EVERY 4 WEEKS)
     Route: 065
  4. TIRZEPATIDE [Suspect]
     Active Substance: TIRZEPATIDE
     Dosage: 10 MILLIGRAM, EVERY WEEK MAINTAINED A 10-MG DOSE FOR ANOTHER 2 MONTHS/UP TO 10MG
     Route: 065
  5. INSULIN HUMAN [Concomitant]
     Active Substance: INSULIN HUMAN
     Indication: Obesity
     Dosage: MULTIPLE
     Route: 065
  6. INSULIN HUMAN [Concomitant]
     Active Substance: INSULIN HUMAN
     Indication: Type 1 diabetes mellitus

REACTIONS (3)
  - Atrial fibrillation [Unknown]
  - Hyperthyroidism [Unknown]
  - Weight decreased [Unknown]
